FAERS Safety Report 21226670 (Version 1)
Quarter: 2022Q3

REPORT INFORMATION
  Report Type: Spontaneous
  Country: US (occurrence: US)
  Receive Date: 20220818
  Receipt Date: 20220818
  Transmission Date: 20221027
  Serious: No
  Sender: FDA-Public Use
  Company Number: US-CIPLA LTD.-2022US01467

PATIENT
  Sex: Female

DRUGS (3)
  1. DICLOFENAC [Suspect]
     Active Substance: DICLOFENAC
     Indication: Arthralgia
     Dosage: UNK
     Route: 065
     Dates: start: 20220218
  2. DICLOFENAC [Suspect]
     Active Substance: DICLOFENAC
     Indication: Neck pain
  3. LOSARTAN [Concomitant]
     Active Substance: LOSARTAN
     Indication: Hypertension
     Dosage: UNK UNK, QD
     Route: 065

REACTIONS (4)
  - Expired product administered [Unknown]
  - Prescription drug used without a prescription [Unknown]
  - Off label use [Unknown]
  - Product use in unapproved indication [Unknown]
